FAERS Safety Report 11380394 (Version 1)
Quarter: 2015Q3

REPORT INFORMATION
  Report Type: Spontaneous
  Country: US (occurrence: None)
  Receive Date: 20150813
  Receipt Date: 20150813
  Transmission Date: 20151125
  Serious: Yes (Death, Hospitalization)
  Sender: FDA-Public Use
  Company Number: None

PATIENT
  Age: 82 Year
  Sex: Female
  Weight: 97.6 kg

DRUGS (2)
  1. 5-FLUOROURACIL (5-FU) [Suspect]
     Active Substance: FLUOROURACIL
     Dates: end: 20020831
  2. MITOMYCIN C [Suspect]
     Active Substance: MITOMYCIN
     Dates: end: 20020827

REACTIONS (4)
  - Adhesion [None]
  - Neutrophil count decreased [None]
  - Small intestinal obstruction [None]
  - Haemoglobin decreased [None]

NARRATIVE: CASE EVENT DATE: 20141126
